FAERS Safety Report 4281554-5 (Version None)
Quarter: 2004Q1

REPORT INFORMATION
  Report Type: 
  Country: None (occurrence: None)
  Receive Date: 20040128
  Receipt Date: 20040115
  Transmission Date: 20041129
  Serious: Yes (Other)
  Sender: FDA-Public Use
  Company Number: 12481172

PATIENT
  Age: 53 Year
  Sex: Female

DRUGS (12)
  1. CYCLOPHOSPHAMIDE [Suspect]
     Indication: OVARIAN EPITHELIAL CANCER
     Dates: start: 19960401, end: 19980301
  2. CISPLATIN [Suspect]
     Dates: start: 19960401, end: 19980101
  3. PACLITAXEL [Suspect]
     Dates: start: 19971101, end: 19980101
  4. ETOPOSIDE [Suspect]
     Dosage: 1200 MG/M2,
     Dates: start: 19980301, end: 19980301
  5. CARBOPLATIN [Suspect]
     Dosage: 1500 MG/M2,
     Dates: start: 19980301, end: 19980301
  6. TREOSULFAN [Suspect]
     Indication: OVARIAN EPITHELIAL CANCER
     Dates: start: 19980401, end: 19980401
  7. FLUOROURACIL [Suspect]
     Dates: start: 19990301
  8. FOLINIC ACID [Suspect]
     Dates: start: 19990301
  9. MITOMYCIN [Suspect]
     Dates: start: 19990301
  10. GEMCITABINE [Suspect]
     Dates: start: 19990301
  11. EPIRUBICIN [Suspect]
     Dates: start: 19990301
  12. TAMOXIFEN CITRATE [Suspect]
     Dates: start: 19990301

REACTIONS (6)
  - ARTHRALGIA [None]
  - NEOPLASM RECURRENCE [None]
  - OSTEONECROSIS [None]
  - OVARIAN CANCER METASTATIC [None]
  - RENAL FAILURE [None]
  - RESPIRATORY FAILURE [None]
